FAERS Safety Report 10532845 (Version 1)
Quarter: 2014Q4

REPORT INFORMATION
  Report Type: Spontaneous
  Country: CN (occurrence: CN)
  Receive Date: 20141022
  Receipt Date: 20141022
  Transmission Date: 20150529
  Serious: Yes (Hospitalization)
  Sender: FDA-Public Use
  Company Number: CN-PFIZER INC-2014285545

PATIENT
  Age: 29 Year
  Sex: Female
  Weight: 75 kg

DRUGS (3)
  1. SOLU-MEDROL [Suspect]
     Active Substance: METHYLPREDNISOLONE SODIUM SUCCINATE
     Indication: SWELLING
     Dosage: 500 MG, 2X/DAY
     Route: 041
     Dates: start: 20140321, end: 20140322
  2. SOLU-MEDROL [Suspect]
     Active Substance: METHYLPREDNISOLONE SODIUM SUCCINATE
     Indication: OPTIC NEURITIS
  3. PUERARIN [Concomitant]
     Indication: VASODILATION PROCEDURE
     Dosage: 0.4 G, 1X/DAY
     Route: 041
     Dates: start: 20140321, end: 20140322

REACTIONS (1)
  - Angina pectoris [Recovering/Resolving]

NARRATIVE: CASE EVENT DATE: 20140323
